FAERS Safety Report 4983448-6 (Version None)
Quarter: 2006Q2

REPORT INFORMATION
  Report Type: 
  Country: None (occurrence: None)
  Receive Date: 20060419
  Receipt Date: 20060406
  Transmission Date: 20061013
  Serious: Yes (Death, Other)
  Sender: FDA-Public Use
  Company Number: 2006047878

PATIENT
  Age: 66 Year
  Sex: Male

DRUGS (8)
  1. PREDNISOLONE [Suspect]
     Indication: T-CELL LYMPHOMA
  2. CYCLOPHOSPHAMIDE [Suspect]
     Indication: T-CELL LYMPHOMA
  3. VINCRISTINE [Suspect]
     Indication: T-CELL LYMPHOMA
  4. RITUXIMAB (RITUXIMAB) [Suspect]
     Indication: T-CELL LYMPHOMA
  5. ETOPOSIDE [Concomitant]
  6. GEMCITABINE [Concomitant]
  7. BLEOMYCIN [Concomitant]
  8. METHOTREXATE [Concomitant]

REACTIONS (4)
  - LEUKAEMIC INFILTRATION HEPATIC [None]
  - MALIGNANT NEOPLASM PROGRESSION [None]
  - PERIPHERAL T-CELL LYMPHOMA UNSPECIFIED [None]
  - THERAPY NON-RESPONDER [None]
